FAERS Safety Report 5070986-3 (Version None)
Quarter: 2006Q3

REPORT INFORMATION
  Report Type: 
  Country: None (occurrence: None)
  Receive Date: 20060803
  Receipt Date: 20060803
  Transmission Date: 20061208
  Serious: Yes (Other)
  Sender: FDA-Public Use
  Company Number: None

PATIENT
  Age: 4 Year
  Sex: Female
  Weight: 18.1439 kg

DRUGS (2)
  1. VAPOR PATCH MADE BY VICKS     AS DIRECTED [Suspect]
     Indication: NASAL CONGESTION
     Dosage: BEFORE NAP    ON FOR 1 HOUR APPR    TOP
     Route: 061
     Dates: start: 20031001, end: 20051101
  2. VAPOR PATCH MADE BY VICKS     AS DIRECTED [Suspect]
     Indication: RESPIRATORY TRACT CONGESTION
     Dosage: BEFORE NAP    ON FOR 1 HOUR APPR    TOP
     Route: 061
     Dates: start: 20031001, end: 20051101

REACTIONS (2)
  - APPLICATION SITE BURN [None]
  - PHARMACEUTICAL PRODUCT COMPLAINT [None]
